FAERS Safety Report 20814070 (Version 2)
Quarter: 2022Q3

REPORT INFORMATION
  Report Type: Report from Study
  Country: US (occurrence: US)
  Receive Date: 20220511
  Receipt Date: 20220825
  Transmission Date: 20221027
  Serious: No
  Sender: FDA-Public Use
  Company Number: US-KYOWAKIRIN-2022BKK006694

PATIENT

DRUGS (2)
  1. CRYSVITA [Suspect]
     Active Substance: BUROSUMAB-TWZA
     Indication: Hereditary hypophosphataemic rickets
     Dosage: 4.72 1X/2 WEEKS
     Route: 065
     Dates: start: 20220206
  2. CRYSVITA [Suspect]
     Active Substance: BUROSUMAB-TWZA
     Dosage: 7 ML 1X/2 WEEKS
     Route: 065

REACTIONS (3)
  - COVID-19 [Unknown]
  - Blood phosphorus decreased [Unknown]
  - Incorrect dose administered [Unknown]
